FAERS Safety Report 9702602 (Version 3)
Quarter: 2013Q4

REPORT INFORMATION
  Report Type: Spontaneous
  Country: JP (occurrence: JP)
  Receive Date: 20131121
  Receipt Date: 20131126
  Transmission Date: 20140711
  Serious: Yes (Other)
  Sender: FDA-Public Use
  Company Number: JP-B.I. PHARMACEUTICALS,INC./RIDGEFIELD-2013-BI-37086YA

PATIENT
  Sex: Male

DRUGS (3)
  1. HARNAL (TAMSULOSIN) ORODISPERSABLE CR [Suspect]
     Indication: PRODUCT USED FOR UNKNOWN INDICATION
     Dosage: 0.2 MG
     Route: 048
  2. LIPOVAS [Concomitant]
     Route: 065
  3. BLOPRESS (CANDESARTAN CILEXETIL) [Concomitant]
     Route: 065

REACTIONS (1)
  - Ageusia [Not Recovered/Not Resolved]
